FAERS Safety Report 24113544 (Version 2)
Quarter: 2024Q4

REPORT INFORMATION
  Report Type: Spontaneous
  Country: US (occurrence: US)
  Receive Date: 20240720
  Receipt Date: 20241001
  Transmission Date: 20250114
  Serious: No
  Sender: MERCK
  Company Number: US-009507513-2406USA009130

PATIENT
  Age: 54 Year
  Sex: Female

DRUGS (4)
  1. WINREVAIR [Suspect]
     Active Substance: SOTATERCEPT-CSRK
     Dosage: UNK
     Dates: start: 202406
  2. REMODULIN [Suspect]
     Active Substance: TREPROSTINIL
     Indication: Pulmonary arterial hypertension
     Dosage: 0.139 MICROGRAM PER KILOGRAM, FREQ: CONTINUOUS
     Route: 042
     Dates: start: 202104
  3. OPSUMIT [Concomitant]
     Active Substance: MACITENTAN
  4. SILDENAFIL CITRATE [Concomitant]
     Active Substance: SILDENAFIL CITRATE

REACTIONS (1)
  - Erythema [Recovered/Resolved]

NARRATIVE: CASE EVENT DATE: 20240601
